FAERS Safety Report 9860942 (Version 1)
Quarter: 2014Q1

REPORT INFORMATION
  Report Type: Spontaneous
  Country: US (occurrence: None)
  Receive Date: 20140131
  Receipt Date: 20140131
  Transmission Date: 20141002
  Serious: Yes (Hospitalization)
  Sender: FDA-Public Use
  Company Number: None

PATIENT
  Age: 58 Year
  Sex: Male
  Weight: 83.92 kg

DRUGS (1)
  1. TESTOSTERONE [Suspect]
     Dates: start: 20130313, end: 20131125

REACTIONS (2)
  - Myocardial infarction [None]
  - Coronary artery occlusion [None]
